FAERS Safety Report 9682739 (Version 2)
Quarter: 2013Q4

REPORT INFORMATION
  Report Type: Spontaneous
  Country: DE (occurrence: DE)
  Receive Date: 20131112
  Receipt Date: 20131122
  Transmission Date: 20140711
  Serious: Yes (Other)
  Sender: FDA-Public Use
  Company Number: DE-JNJFOC-20131105445

PATIENT
  Age: 45 Year
  Sex: Female
  Weight: 120 kg

DRUGS (4)
  1. XARELTO [Suspect]
     Indication: PULMONARY EMBOLISM
     Route: 048
     Dates: start: 20130711, end: 20131030
  2. PANTOZOL [Concomitant]
     Indication: PROPHYLAXIS
     Route: 065
     Dates: start: 20130711
  3. CELEBREX [Concomitant]
     Indication: POLYARTHRITIS
     Route: 065
  4. SULFASALAZINE [Concomitant]
     Indication: POLYARTHRITIS
     Route: 065

REACTIONS (2)
  - Pulmonary embolism [Recovering/Resolving]
  - Drug ineffective [Unknown]
